FAERS Safety Report 25361002 (Version 1)
Quarter: 2025Q2

REPORT INFORMATION
  Report Type: Spontaneous
  Country: ES (occurrence: ES)
  Receive Date: 20250527
  Receipt Date: 20250527
  Transmission Date: 20250717
  Serious: Yes (Hospitalization)
  Sender: RANBAXY
  Company Number: ES-SUN PHARMACEUTICAL INDUSTRIES LTD-2025R1-505823

PATIENT
  Age: 48 Year
  Sex: Male

DRUGS (16)
  1. CLOZAPINE [Suspect]
     Active Substance: CLOZAPINE
     Indication: Schizophrenia
     Route: 065
  2. CLOZAPINE [Suspect]
     Active Substance: CLOZAPINE
     Route: 065
  3. CLOZAPINE [Suspect]
     Active Substance: CLOZAPINE
     Route: 065
  4. CLOZAPINE [Suspect]
     Active Substance: CLOZAPINE
     Dosage: 300 MILLIGRAM, QD ON DAY 20
     Route: 065
  5. CLOZAPINE [Suspect]
     Active Substance: CLOZAPINE
     Dosage: 25 MILLIGRAM, QD DAY 1 OF SECOND TITRATION
     Route: 065
  6. CLOZAPINE [Suspect]
     Active Substance: CLOZAPINE
     Dosage: 50 MILLIGRAM, QD DAY 4
     Route: 065
  7. CLOZAPINE [Suspect]
     Active Substance: CLOZAPINE
     Dosage: 75 MILLIGRAM, QD DAY 5
     Route: 065
  8. CLOZAPINE [Suspect]
     Active Substance: CLOZAPINE
     Dosage: 125 MILLIGRAM, QD DAY 8
     Route: 065
  9. CLOZAPINE [Suspect]
     Active Substance: CLOZAPINE
     Dosage: 175 MILLIGRAM, QD DAY 12
     Route: 065
  10. CLOZAPINE [Suspect]
     Active Substance: CLOZAPINE
     Dosage: 225 MILLIGRAM, QD DAY 14
     Route: 065
  11. CLOZAPINE [Suspect]
     Active Substance: CLOZAPINE
     Dosage: 250 MILLIGRAM, QD DAY 20
     Route: 065
  12. CLOZAPINE [Suspect]
     Active Substance: CLOZAPINE
     Dosage: 275 MILLIGRAM, QD DAY 22
     Route: 065
  13. CLOZAPINE [Suspect]
     Active Substance: CLOZAPINE
     Dosage: 300 MILLIGRAM, QD DAY 30
     Route: 065
  14. CLOZAPINE [Suspect]
     Active Substance: CLOZAPINE
     Dosage: 350 MILLIGRAM, QD DAY 34
     Route: 065
  15. CLOZAPINE [Suspect]
     Active Substance: CLOZAPINE
     Dosage: 400 MILLIGRAM, QD DAY 36
     Route: 065
  16. CLOZAPINE [Suspect]
     Active Substance: CLOZAPINE
     Dosage: 500 MILLIGRAM, QD DAY 72 AFTER SECOND TITRATION
     Route: 065

REACTIONS (2)
  - Dropped head syndrome [Unknown]
  - Inflammation [Unknown]
